FAERS Safety Report 21064321 (Version 1)
Quarter: 2022Q3

REPORT INFORMATION
  Report Type: Spontaneous
  Country: FR (occurrence: FR)
  Receive Date: 20220711
  Receipt Date: 20220711
  Transmission Date: 20221027
  Serious: No
  Sender: FDA-Public Use
  Company Number: FR-BAXTER-2022BAX013610

PATIENT
  Age: 72 Year
  Sex: Female
  Weight: 81 kg

DRUGS (1)
  1. OLIMEL E [Suspect]
     Active Substance: AMINO ACIDS\DEXTROSE\ELECTROLYTES NOS\SOYBEAN OIL
     Dosage: UNK, 1500 CC/24HOURS ,ROUTE: PERIPHERAL ADMINISTRATION
     Route: 065
     Dates: start: 20220627, end: 20220628

REACTIONS (4)
  - Peripheral swelling [Recovered/Resolved]
  - Incorrect route of product administration [Unknown]
  - Wrong product administered [Unknown]
  - Product label confusion [Unknown]

NARRATIVE: CASE EVENT DATE: 20220627
